FAERS Safety Report 5076750-3 (Version None)
Quarter: 2006Q3

REPORT INFORMATION
  Report Type: 
  Country: None (occurrence: None)
  Receive Date: 20060807
  Receipt Date: 20060719
  Transmission Date: 20061208
  Serious: Yes (Hospitalization)
  Sender: FDA-Public Use
  Company Number: ES200607004957

PATIENT
  Age: 14 Year
  Sex: Male
  Weight: 100 kg

DRUGS (1)
  1. SOMATROPIN (SOMATROPIN) [Suspect]
     Indication: GROWTH HORMONE DEFICIENCY
     Dosage: SUBCUTANEOUS
     Route: 058
     Dates: start: 20050201

REACTIONS (3)
  - EPIPHYSIOLYSIS [None]
  - FATIGUE [None]
  - GAIT DISTURBANCE [None]
